FAERS Safety Report 23889497 (Version 5)
Quarter: 2025Q3

REPORT INFORMATION
  Report Type: Spontaneous
  Country: EU (occurrence: EU)
  Receive Date: 20240523
  Receipt Date: 20250718
  Transmission Date: 20251021
  Serious: Yes (Other)
  Sender: NOVARTIS
  Company Number: EU-ABBVIE-5758550

PATIENT
  Age: 26 Year
  Sex: Male

DRUGS (22)
  1. CYCLOSPORINE [Suspect]
     Active Substance: CYCLOSPORINE
     Indication: Retinitis pigmentosa
     Route: 048
  2. CYCLOSPORINE [Suspect]
     Active Substance: CYCLOSPORINE
     Indication: Cystoid macular oedema
     Route: 047
  3. NEPAFENAC [Suspect]
     Active Substance: NEPAFENAC
     Indication: Retinitis pigmentosa
     Route: 047
  4. NEPAFENAC [Suspect]
     Active Substance: NEPAFENAC
     Indication: Cystoid macular oedema
  5. DEXAMETHASONE [Suspect]
     Active Substance: DEXAMETHASONE
     Indication: Retinitis pigmentosa
     Route: 031
  6. DEXAMETHASONE [Suspect]
     Active Substance: DEXAMETHASONE
     Indication: Cystoid macular oedema
  7. ADALIMUMAB [Suspect]
     Active Substance: ADALIMUMAB
     Indication: Retinitis pigmentosa
     Dosage: UNK, QW
     Route: 058
  8. ADALIMUMAB [Suspect]
     Active Substance: ADALIMUMAB
     Indication: Cystoid macular oedema
     Route: 058
  9. TRIAMCINOLONE ACETONIDE [Suspect]
     Active Substance: TRIAMCINOLONE ACETONIDE
     Indication: Retinitis pigmentosa
     Route: 047
  10. TRIAMCINOLONE ACETONIDE [Suspect]
     Active Substance: TRIAMCINOLONE ACETONIDE
     Indication: Cystoid macular oedema
     Route: 047
  11. DORZOLAMIDE [Suspect]
     Active Substance: DORZOLAMIDE
     Indication: Retinitis pigmentosa
     Route: 065
  12. DORZOLAMIDE [Suspect]
     Active Substance: DORZOLAMIDE
     Indication: Cystoid macular oedema
  13. ACETAZOLAMIDE [Suspect]
     Active Substance: ACETAZOLAMIDE
     Indication: Cystoid macular oedema
     Route: 048
  14. ACETAZOLAMIDE [Suspect]
     Active Substance: ACETAZOLAMIDE
     Indication: Retinitis pigmentosa
     Route: 048
  15. METHOTREXATE [Suspect]
     Active Substance: METHOTREXATE
     Indication: Retinitis pigmentosa
     Route: 048
  16. METHOTREXATE [Suspect]
     Active Substance: METHOTREXATE
     Route: 047
  17. IMURAN [Suspect]
     Active Substance: AZATHIOPRINE
     Indication: Retinitis pigmentosa
     Route: 048
  18. IMURAN [Suspect]
     Active Substance: AZATHIOPRINE
     Indication: Cystoid macular oedema
     Route: 047
  19. INFLIXIMAB [Suspect]
     Active Substance: INFLIXIMAB
     Indication: Retinitis pigmentosa
     Route: 048
  20. INFLIXIMAB [Suspect]
     Active Substance: INFLIXIMAB
     Route: 047
  21. DECADRON (DEXAMETHASONE SODIUM PHOSPHATE) [Suspect]
     Active Substance: DEXAMETHASONE SODIUM PHOSPHATE
     Indication: Retinitis pigmentosa
     Route: 031
  22. DECADRON (DEXAMETHASONE SODIUM PHOSPHATE) [Suspect]
     Active Substance: DEXAMETHASONE SODIUM PHOSPHATE
     Indication: Cystoid macular oedema

REACTIONS (3)
  - Cystoid macular oedema [Recovered/Resolved]
  - Drug ineffective for unapproved indication [Unknown]
  - Therapeutic product effect incomplete [Unknown]
